FAERS Safety Report 15601188 (Version 1)
Quarter: 2018Q4

REPORT INFORMATION
  Report Type: Spontaneous
  Country: US (occurrence: US)
  Receive Date: 20181109
  Receipt Date: 20181109
  Transmission Date: 20190205
  Serious: No
  Sender: FDA-Public Use
  Company Number: US-PFIZER INC-2018152090

PATIENT
  Age: 54 Year
  Sex: Male
  Weight: 88.44 kg

DRUGS (2)
  1. SOMAVERT [Suspect]
     Active Substance: PEGVISOMANT
     Indication: PITUITARY TUMOUR BENIGN
     Dosage: 30 MG, 1X/DAY
     Dates: start: 20111121
  2. AVALIDE [Concomitant]
     Active Substance: HYDROCHLOROTHIAZIDE\IRBESARTAN
     Indication: BLOOD PRESSURE ABNORMAL
     Dosage: 12.5 MG, 1X/DAY

REACTIONS (3)
  - Back pain [Unknown]
  - Insulin-like growth factor increased [Unknown]
  - Bone density increased [Unknown]

NARRATIVE: CASE EVENT DATE: 20180319
